FAERS Safety Report 6518302-1 (Version None)
Quarter: 2009Q4

REPORT INFORMATION
  Report Type: 
  Country: None (occurrence: None)
  Receive Date: 20091224
  Receipt Date: 20091219
  Transmission Date: 20100525
  Serious: Yes (Other)
  Sender: FDA-Public Use
  Company Number: US-GENENTECH-294973

PATIENT
  Sex: Female
  Weight: 54.422 kg

DRUGS (4)
  1. XOLAIR [Suspect]
     Indication: ASTHMA
     Dosage: 150 MG, Q4W
     Route: 058
     Dates: start: 20090609, end: 20091123
  2. IMITREX [Concomitant]
     Indication: DRUG USE FOR UNKNOWN INDICATION
  3. ZYZOL (UNK INGREDIENTS) [Concomitant]
     Indication: DRUG USE FOR UNKNOWN INDICATION
  4. CONCOMITANT DRUGS [Concomitant]
     Indication: DRUG USE FOR UNKNOWN INDICATION

REACTIONS (3)
  - BRONCHOSPASM [None]
  - HYPERSENSITIVITY [None]
  - WHEEZING [None]
